FAERS Safety Report 25307323 (Version 1)
Quarter: 2025Q2

REPORT INFORMATION
  Report Type: Spontaneous
  Country: NL (occurrence: NL)
  Receive Date: 20250513
  Receipt Date: 20250513
  Transmission Date: 20250717
  Serious: Yes (Life-Threatening)
  Sender: TEVA
  Company Number: None

PATIENT
  Age: 34 Year
  Sex: Female
  Weight: 86 kg

DRUGS (1)
  1. DOXYCYCLINE [Suspect]
     Active Substance: DOXYCYCLINE
     Indication: Arthropod bite
     Dosage: 1 PIECE 2X PER DAY, DISPERTABLET 100MG / BRAND NAME NOT SPECIFIED
     Route: 048
     Dates: start: 20250417, end: 20250422

REACTIONS (2)
  - Depressed mood [Recovering/Resolving]
  - Suicidal ideation [Recovering/Resolving]
